FAERS Safety Report 18961275 (Version 3)
Quarter: 2021Q2

REPORT INFORMATION
  Report Type: Report from Study
  Country: US (occurrence: US)
  Receive Date: 20210302
  Receipt Date: 20210417
  Transmission Date: 20210717
  Serious: Yes (Hospitalization)
  Sender: FDA-Public Use
  Company Number: US-TAKEDA-2021TUS011749

PATIENT
  Sex: Male
  Weight: 87.08 kg

DRUGS (15)
  1. TAMSULOSIN [Concomitant]
     Active Substance: TAMSULOSIN
  2. PRED FORTE [Concomitant]
     Active Substance: PREDNISOLONE ACETATE
  3. CUVITRU [Suspect]
     Active Substance: HUMAN IMMUNOGLOBULIN G
     Indication: CONGENITAL HYPOGAMMAGLOBULINAEMIA
  4. OMEPRAZOLE. [Concomitant]
     Active Substance: OMEPRAZOLE
  5. EPINEPHRINE. [Concomitant]
     Active Substance: EPINEPHRINE
  6. CUVITRU [Suspect]
     Active Substance: HUMAN IMMUNOGLOBULIN G
     Indication: IMMUNODEFICIENCY COMMON VARIABLE
     Dosage: 25 GRAM, Q2WEEKS
     Route: 058
     Dates: start: 20200617
  7. CEFTRIAXONE. [Concomitant]
     Active Substance: CEFTRIAXONE
  8. ALBUTEROL SULFATE. [Concomitant]
     Active Substance: ALBUTEROL SULFATE
  9. LMX4 [Concomitant]
     Active Substance: LIDOCAINE
  10. MUPIROCIN. [Concomitant]
     Active Substance: MUPIROCIN
  11. HYOSCYAMINE SULFATE. [Concomitant]
     Active Substance: HYOSCYAMINE SULFATE
  12. DIPHENHYDRAMINE. [Concomitant]
     Active Substance: DIPHENHYDRAMINE
  13. BUDESONIDE. [Concomitant]
     Active Substance: BUDESONIDE
  14. CIALIS [Concomitant]
     Active Substance: TADALAFIL
  15. ACETAMINOPHEN. [Concomitant]
     Active Substance: ACETAMINOPHEN

REACTIONS (5)
  - Rash [Unknown]
  - Dry skin [Unknown]
  - Muscle spasms [Unknown]
  - Blood calcium decreased [Unknown]
  - Muscle twitching [Unknown]
